FAERS Safety Report 7785902-0 (Version None)
Quarter: 2011Q3

REPORT INFORMATION
  Report Type: 
  Country: None (occurrence: None)
  Receive Date: 20110929
  Receipt Date: 20110926
  Transmission Date: 20111222
  Serious: Yes (Hospitalization, Other)
  Sender: FDA-Public Use
  Company Number: US-ROCHE-552212

PATIENT
  Sex: Female
  Weight: 59 kg

DRUGS (5)
  1. ACCUTANE [Suspect]
     Dosage: DOSE ALTERNATING 40MG/80MG
     Route: 048
     Dates: start: 20050805, end: 20060111
  2. ORTHO TRI-CYCLEN [Concomitant]
  3. ACCUTANE [Suspect]
     Indication: ACNE
     Dosage: TOTAL THERAPY DURATION: 21 WKS
     Route: 048
     Dates: start: 19990909, end: 20000228
  4. YASMIN [Concomitant]
  5. LOPID [Suspect]
     Indication: BLOOD TRIGLYCERIDES INCREASED
     Dosage: LOPID 1/2 TABLET ONE HALF HOUR BEFORE MEALS.
     Route: 065
     Dates: start: 20051117, end: 20051215

REACTIONS (18)
  - INFLAMMATORY BOWEL DISEASE [None]
  - CHEILITIS [None]
  - FALL [None]
  - CROHN'S DISEASE [None]
  - ACNE [None]
  - TOOTHACHE [None]
  - ALOPECIA [None]
  - ABDOMINAL DISTENSION [None]
  - ANAL FISTULA [None]
  - ABDOMINAL DISCOMFORT [None]
  - LACERATION [None]
  - PERIRECTAL ABSCESS [None]
  - FATIGUE [None]
  - BLOOD TRIGLYCERIDES ABNORMAL [None]
  - SINUSITIS [None]
  - EPISTAXIS [None]
  - DRY SKIN [None]
  - FACIAL PAIN [None]
